FAERS Safety Report 8312845-6 (Version None)
Quarter: 2012Q2

REPORT INFORMATION
  Report Type: 
  Country: None (occurrence: None)
  Receive Date: 20120426
  Receipt Date: 20120423
  Transmission Date: 20120825
  Serious: No
  Sender: FDA-Public Use
  Company Number: US-PFIZER INC-2012100355

PATIENT
  Sex: Female

DRUGS (1)
  1. IBUPROFEN (ADVIL) [Suspect]
     Dosage: 400 MG, ONCE
     Route: 048
     Dates: start: 20120101

REACTIONS (2)
  - DIZZINESS [None]
  - MUSCULAR WEAKNESS [None]
